FAERS Safety Report 15449336 (Version 1)
Quarter: 2018Q4

REPORT INFORMATION
  Report Type: Spontaneous
  Country: IN (occurrence: IN)
  Receive Date: 20181001
  Receipt Date: 20181001
  Transmission Date: 20190204
  Serious: Yes (Death)
  Sender: FDA-Public Use
  Company Number: IN-EDENBRIDGE PHARMACEUTICALS, LLC-IN-2018EDE000273

PATIENT
  Age: 55 Year
  Sex: Male

DRUGS (8)
  1. CYCLOPHOSPHAMIDE. [Suspect]
     Active Substance: CYCLOPHOSPHAMIDE
     Indication: BURKITT^S LEUKAEMIA
     Dosage: UNK
     Route: 042
  2. VINCRISTINE [Suspect]
     Active Substance: VINCRISTINE
     Indication: BURKITT^S LEUKAEMIA
     Dosage: UNK
     Route: 042
  3. ETOPOSIDE. [Suspect]
     Active Substance: ETOPOSIDE
     Indication: BURKITT^S LEUKAEMIA
     Dosage: UNK
     Route: 042
  4. RITUXIMAB. [Suspect]
     Active Substance: RITUXIMAB
     Indication: BURKITT^S LEUKAEMIA
     Dosage: 375 MG/M2, ON DAY 1 OF CHEMOTHERAPY CYCLES
     Route: 042
  5. DOXORUBICIN [Suspect]
     Active Substance: DOXORUBICIN
     Indication: BURKITT^S LEUKAEMIA
     Dosage: UNK
     Route: 042
  6. GRANULOCYTE COLONY STIMULATING FACTOR [Concomitant]
     Active Substance: GRANULOCYTE COLONY-STIMULATING FACTOR NOS
     Indication: PRODUCT USED FOR UNKNOWN INDICATION
     Dosage: UNK
  7. PREDNISOLONE SODIUM PHOSPHATE. [Suspect]
     Active Substance: PREDNISOLONE SODIUM PHOSPHATE
     Indication: BURKITT^S LEUKAEMIA
     Dosage: UNK
     Route: 042
  8. METHOTREXATE. [Concomitant]
     Active Substance: METHOTREXATE
     Indication: PROPHYLAXIS
     Dosage: 12.5 MG, ON DAY 4 OF EACH CYCLE
     Route: 037

REACTIONS (1)
  - Pulmonary sepsis [Fatal]
